FAERS Safety Report 6357108-3 (Version None)
Quarter: 2009Q3

REPORT INFORMATION
  Report Type: 
  Country: None (occurrence: None)
  Receive Date: 20090915
  Receipt Date: 20090909
  Transmission Date: 20100115
  Serious: Yes (Other)
  Sender: FDA-Public Use
  Company Number: JP-ALLERGAN-0911902US

PATIENT
  Age: 80 Year
  Sex: Female

DRUGS (8)
  1. ALESION TABLET [Suspect]
     Indication: URTICARIA
     Route: 048
  2. CRESTOR [Concomitant]
     Route: 048
  3. MELBIN [Concomitant]
     Route: 048
  4. DEPAS [Concomitant]
     Route: 048
  5. MENESIT [Concomitant]
     Route: 048
  6. ZOLOFT [Concomitant]
     Route: 048
  7. ASPIRIN [Concomitant]
     Route: 048
  8. GASTER [Concomitant]

REACTIONS (1)
  - DELIRIUM [None]
